FAERS Safety Report 9283800 (Version 1)
Quarter: 2013Q2

REPORT INFORMATION
  Report Type: Spontaneous
  Country: US (occurrence: None)
  Receive Date: 20130506
  Receipt Date: 20130506
  Transmission Date: 20140414
  Serious: Yes (Other)
  Sender: FDA-Public Use
  Company Number: AUR-APL-2013-03607

PATIENT
  Age: 47 Year
  Sex: Female

DRUGS (19)
  1. MELOXICAM (MELOXICAM) [Suspect]
     Indication: FIBROMYALGIA
     Dosage: 15 MG (7.5 MG, 2 IN 1 D)
  2. MELOXICAM (MELOXICAM) [Suspect]
     Indication: OSTEOARTHRITIS
     Dosage: 15 MG (7.5 MG, 2 IN 1 D)
  3. MELOXICAM (MELOXICAM) [Suspect]
     Dosage: 15 MG (7.5 MG, 2 IN 1 D)
  4. CELEBREX (CELECOXIB) [Suspect]
     Indication: FIBROMYALGIA
  5. CELEBREX (CELECOXIB) [Suspect]
     Indication: OSTEOARTHRITIS
  6. CELEBREX (CELECOXIB) [Suspect]
  7. LYRICA [Suspect]
     Indication: FIBROMYALGIA
  8. LYRICA [Suspect]
     Indication: OSTEOARTHRITIS
  9. LYRICA [Suspect]
  10. IBUPROFEN [Suspect]
     Indication: FIBROMYALGIA
  11. IBUPROFEN [Suspect]
     Indication: OSTEOARTHRITIS
  12. IBUPROFEN [Suspect]
  13. CYMBALTA [Suspect]
     Indication: FIBROMYALGIA
     Dosage: (60 MG, 2 IN 1 D)
  14. CYMBALTA [Suspect]
     Indication: OSTEOARTHRITIS
     Dosage: (60 MG, 2 IN 1 D)
  15. CYMBALTA [Suspect]
     Dosage: (60 MG, 2 IN 1 D)
  16. VICODIN [Suspect]
     Indication: FIBROMYALGIA
  17. VICODIN [Suspect]
     Indication: OSTEOARTHRITIS
  18. VICODIN [Suspect]
  19. BACLOFEN(BACLOFEN) [Concomitant]

REACTIONS (4)
  - Drug ineffective [None]
  - Osteoarthritis [None]
  - Therapy cessation [None]
  - Pain [None]
